FAERS Safety Report 8429402-3 (Version None)
Quarter: 2012Q2

REPORT INFORMATION
  Report Type: 
  Country: None (occurrence: None)
  Receive Date: 20120612
  Receipt Date: 20120531
  Transmission Date: 20120825
  Serious: No
  Sender: FDA-Public Use
  Company Number: US-B.I. PHARMACEUTICALS,INC./RIDGEFIELD-2012-BP-12752BP

PATIENT
  Age: 85 Year
  Sex: Female

DRUGS (4)
  1. PRADAXA [Suspect]
     Indication: ATRIAL FIBRILLATION
     Dosage: 150 MG
     Route: 048
     Dates: start: 20110101
  2. TOPROL-XL [Concomitant]
     Indication: HYPERTENSION
     Dosage: 100 MG
     Route: 048
     Dates: start: 20020101
  3. MAXZIDE [Suspect]
     Indication: HYPERTENSION
     Route: 048
     Dates: start: 20110101, end: 20110801
  4. NORVASC [Concomitant]
     Indication: HYPERTENSION
     Dosage: 5 MG
     Route: 048
     Dates: start: 20020101

REACTIONS (1)
  - BLOOD CREATININE INCREASED [None]
